FAERS Safety Report 7539836-7 (Version None)
Quarter: 2011Q2

REPORT INFORMATION
  Report Type: 
  Country: None (occurrence: None)
  Receive Date: 20110610
  Receipt Date: 20110601
  Transmission Date: 20111010
  Serious: Yes (Other)
  Sender: FDA-Public Use
  Company Number: GB-SANOFI-AVENTIS-2011SA031476

PATIENT
  Sex: Female

DRUGS (8)
  1. FLECAINIDE ACETATE [Concomitant]
  2. PROPRANOLOL [Concomitant]
  3. ANTIBIOTICS [Concomitant]
  4. LOPERAMIDE HYDROCHLORIDE [Concomitant]
     Indication: DIARRHOEA
     Dosage: DOSE:1 UNIT(S)
     Route: 065
     Dates: start: 20110519
  5. MULTAQ [Suspect]
     Indication: ATRIAL FIBRILLATION
     Route: 048
     Dates: start: 20110518
  6. ATENOLOL [Concomitant]
  7. ASPIRIN [Concomitant]
  8. PRAVASTATIN [Concomitant]

REACTIONS (6)
  - SYNCOPE [None]
  - HYPERTENSION [None]
  - NAUSEA [None]
  - ANXIETY [None]
  - ATRIAL FIBRILLATION [None]
  - MALAISE [None]
